FAERS Safety Report 17506156 (Version 1)
Quarter: 2020Q1

REPORT INFORMATION
  Report Type: Spontaneous
  Country: US (occurrence: US)
  Receive Date: 20200305
  Receipt Date: 20200305
  Transmission Date: 20200409
  Serious: No
  Sender: FDA-Public Use
  Company Number: US-ROCHE-2397497

PATIENT
  Age: 44 Year
  Sex: Female
  Weight: 77.18 kg

DRUGS (1)
  1. XOLAIR [Suspect]
     Active Substance: OMALIZUMAB
     Indication: PRODUCT USED FOR UNKNOWN INDICATION
     Route: 065
     Dates: start: 20190827

REACTIONS (10)
  - Ear pain [Not Recovered/Not Resolved]
  - Vomiting [Recovering/Resolving]
  - Pain in extremity [Not Recovered/Not Resolved]
  - Nausea [Not Recovered/Not Resolved]
  - Chills [Recovered/Resolved]
  - Dyspnoea [Not Recovered/Not Resolved]
  - Pharyngeal disorder [Recovering/Resolving]
  - Speech disorder [Recovered/Resolved]
  - Pain [Not Recovered/Not Resolved]
  - Headache [Not Recovered/Not Resolved]

NARRATIVE: CASE EVENT DATE: 20190827
